FAERS Safety Report 7540318-7 (Version None)
Quarter: 2011Q2

REPORT INFORMATION
  Report Type: 
  Country: None (occurrence: None)
  Receive Date: 20110610
  Receipt Date: 20110606
  Transmission Date: 20111010
  Serious: Yes (Disabling)
  Sender: FDA-Public Use
  Company Number: FR-BRISTOL-MYERS SQUIBB COMPANY-15811466

PATIENT
  Age: 36 Year
  Sex: Male

DRUGS (2)
  1. ATORVASTATIN [Suspect]
     Indication: HYPERTRIGLYCERIDAEMIA
     Dosage: 40MG FROM 2003 TO 25MAR2011
     Dates: start: 20020101, end: 20110325
  2. PRAVASTATIN SODIUM [Suspect]
     Indication: HYPERTRIGLYCERIDAEMIA
     Dosage: 1DF=1 UNITS NOT SPECIFIED
     Route: 048
     Dates: start: 20011022, end: 20020101

REACTIONS (1)
  - TENDONITIS [None]
